FAERS Safety Report 19362217 (Version 1)
Quarter: 2021Q2

REPORT INFORMATION
  Report Type: Report from Study
  Country: BR (occurrence: BR)
  Receive Date: 20210601
  Receipt Date: 20210601
  Transmission Date: 20210717
  Serious: Yes (Life-Threatening, Hospitalization, Other)
  Sender: FDA-Public Use
  Company Number: NVSC2021BR122474

PATIENT
  Sex: Female

DRUGS (2)
  1. ENTRESTO [Suspect]
     Active Substance: SACUBITRIL\VALSARTAN
     Dosage: 100 MG, UNKNOWN(DOSE: 49/51)
     Route: 065
  2. ENTRESTO [Suspect]
     Active Substance: SACUBITRIL\VALSARTAN
     Indication: PRODUCT USED FOR UNKNOWN INDICATION
     Dosage: 50 MG (24/26, FREQ: CONTINOUS USE)
     Route: 065
     Dates: end: 20210528

REACTIONS (10)
  - Heart rate abnormal [Unknown]
  - Liver disorder [Unknown]
  - Near death experience [Unknown]
  - Swelling [Unknown]
  - Anxiety [Unknown]
  - Nausea [Unknown]
  - Wrong technique in product usage process [Unknown]
  - Infarction [Unknown]
  - Nervousness [Unknown]
  - Underdose [Unknown]
